FAERS Safety Report 9995712 (Version 1)
Quarter: 2014Q1

REPORT INFORMATION
  Report Type: Spontaneous
  Country: IT (occurrence: IT)
  Receive Date: 20140311
  Receipt Date: 20140311
  Transmission Date: 20141002
  Serious: Yes (Hospitalization)
  Sender: FDA-Public Use
  Company Number: IT-TEVA-467223ISR

PATIENT
  Age: 47 Year
  Sex: Male

DRUGS (5)
  1. ROCURONIUM [Suspect]
     Indication: INDUCTION OF ANAESTHESIA
     Dosage: 40 MG TOTAL
     Route: 042
     Dates: start: 20131209, end: 20131209
  2. EN - 1 MG/ML GOCCE ORALI SOLUZIONE [Concomitant]
     Indication: PRODUCT USED FOR UNKNOWN INDICATION
     Dosage: ORAL DROPS, SOLUTION
  3. FENTANEST - 0,1 MG/2 ML SOLUZIONE INIETTABILE [Concomitant]
     Indication: PRODUCT USED FOR UNKNOWN INDICATION
     Dosage: SOLUTION FOR INJECTION
  4. PRAMIPEXOLE DIHYDROCHLORIDE MONOHYDRATE [Concomitant]
     Indication: PRODUCT USED FOR UNKNOWN INDICATION
  5. PROPOFOL [Concomitant]
     Indication: PRODUCT USED FOR UNKNOWN INDICATION
     Dosage: 200 MG

REACTIONS (4)
  - Epiglottic oedema [Recovered/Resolved]
  - Face oedema [Recovered/Resolved]
  - Rash [Recovered/Resolved]
  - Tongue oedema [Recovered/Resolved]
